FAERS Safety Report 15696833 (Version 2)
Quarter: 2019Q2

REPORT INFORMATION
  Report Type: Spontaneous
  Country: US (occurrence: US)
  Receive Date: 20181206
  Receipt Date: 20190412
  Transmission Date: 20190711
  Serious: No
  Sender: FDA-Public Use
  Company Number: US-PFIZER INC-2018470013

PATIENT
  Age: 68 Year
  Sex: Female

DRUGS (8)
  1. DOCETAXEL. [Suspect]
     Active Substance: DOCETAXEL
     Indication: BREAST CANCER METASTATIC
     Dosage: 131 MG, CYCLIC (EVERY 3 WEEKS, 4 CYCLES)
     Dates: start: 20160511, end: 20160706
  2. DOCETAXEL ACTAVIS [Suspect]
     Active Substance: DOCETAXEL
     Indication: BREAST CANCER METASTATIC
     Dosage: 131 MG, CYCLIC (EVERY 3 WEEKS, 4 CYCLES)
     Dates: start: 20160511, end: 20160706
  3. DOCETAXEL SANDOZ [Suspect]
     Active Substance: DOCETAXEL
     Indication: BREAST CANCER METASTATIC
     Dosage: 131 MG, CYCLIC (EVERY 3 WEEKS, 4 CYCLES)
     Dates: start: 20160511, end: 20160706
  4. DOCETAXEL ACCORD [Suspect]
     Active Substance: DOCETAXEL
     Indication: BREAST CANCER METASTATIC
     Dosage: 131 MG, CYCLIC (EVERY 3 WEEKS, 4 CYCLES)
     Dates: start: 20160511, end: 20160706
  5. NEOSAR [Concomitant]
     Active Substance: CYCLOPHOSPHAMIDE
     Indication: CHEMOTHERAPY
     Dosage: UNK
  6. DOCETAXEL MCKESSON [Suspect]
     Active Substance: DOCETAXEL
     Indication: BREAST CANCER METASTATIC
     Dosage: 131 MG, CYCLIC (EVERY 3 WEEKS, 4 CYCLES)
     Dates: start: 20160511, end: 20160706
  7. DOCETAXEL. [Suspect]
     Active Substance: DOCETAXEL
     Indication: BREAST CANCER METASTATIC
     Dosage: 131 MG, CYCLIC (EVERY 3 WEEKS, 4 CYCLES)
     Dates: start: 20160511, end: 20160706
  8. DOCETAXEL SANOFI-AVENTIS [Suspect]
     Active Substance: DOCETAXEL
     Indication: BREAST CANCER METASTATIC
     Dosage: 131 MG, CYCLIC (EVERY 3 WEEKS, 4 CYCLES)
     Dates: start: 20160511, end: 20160706

REACTIONS (6)
  - Adjustment disorder [Unknown]
  - Hair disorder [Not Recovered/Not Resolved]
  - Madarosis [Not Recovered/Not Resolved]
  - Hair colour changes [Not Recovered/Not Resolved]
  - Alopecia [Not Recovered/Not Resolved]
  - Hair texture abnormal [Not Recovered/Not Resolved]

NARRATIVE: CASE EVENT DATE: 20160525
